FAERS Safety Report 24753612 (Version 5)
Quarter: 2025Q2

REPORT INFORMATION
  Report Type: Report from Study
  Country: US (occurrence: US)
  Receive Date: 20241219
  Receipt Date: 20250528
  Transmission Date: 20250716
  Serious: Yes (Other)
  Sender: UCB
  Company Number: US-UCBSA-2024065727

PATIENT
  Age: 21 Year
  Sex: Male
  Weight: 55.8 kg

DRUGS (3)
  1. FINTEPLA [Suspect]
     Active Substance: FENFLURAMINE
     Indication: Seizure
     Dates: start: 20221006
  2. FINTEPLA [Suspect]
     Active Substance: FENFLURAMINE
     Indication: Lennox-Gastaut syndrome
     Dosage: 5.5 MILLILITER, 2X/DAY (BID)
     Route: 048
  3. FINTEPLA [Suspect]
     Active Substance: FENFLURAMINE
     Dosage: 5.5 MILLILITER, 2X/DAY (BID)

REACTIONS (3)
  - Pulmonary valve incompetence [Not Recovered/Not Resolved]
  - Aortic valve thickening [Recovering/Resolving]
  - Atrial hypertrophy [Not Recovered/Not Resolved]

NARRATIVE: CASE EVENT DATE: 20240118
